FAERS Safety Report 17259798 (Version 2)
Quarter: 2020Q1

REPORT INFORMATION
  Report Type: Spontaneous
  Country: US (occurrence: US)
  Receive Date: 20200110
  Receipt Date: 20200131
  Transmission Date: 20200409
  Serious: Yes (Other)
  Sender: FDA-Public Use
  Company Number: US-BAXTER-2020BAX000678

PATIENT
  Age: 34 Year
  Sex: Male

DRUGS (5)
  1. DOXIL [Suspect]
     Active Substance: DOXORUBICIN HYDROCHLORIDE
     Indication: SARCOMA
     Dosage: DAYS 1-2 EACH 21-DAY CYCLE ; CYCLICAL
     Route: 065
  2. LEVETIRACETAM. [Concomitant]
     Active Substance: LEVETIRACETAM
     Indication: SEIZURE PROPHYLAXIS
     Route: 065
     Dates: start: 201207
  3. IFOSFAMIDE FOR INJECTION [Suspect]
     Active Substance: IFOSFAMIDE
     Indication: SARCOMA
     Dosage: DAYS 1-2 EACH 21-DAY CYCLE; CYCLICAL
     Route: 065
  4. BEVACIZUMAB. [Suspect]
     Active Substance: BEVACIZUMAB
     Indication: VASOGENIC CEREBRAL OEDEMA
     Dosage: EVERY 2 WEEKS; CYCLICAL
     Route: 065
  5. BEVACIZUMAB. [Suspect]
     Active Substance: BEVACIZUMAB
     Indication: ASTROCYTOMA
     Dosage: EVERY 2 WEEKS; CYCLICAL
     Route: 065

REACTIONS (2)
  - Fatigue [Unknown]
  - Febrile neutropenia [Unknown]
